FAERS Safety Report 11317849 (Version 1)
Quarter: 2015Q3

REPORT INFORMATION
  Report Type: Spontaneous
  Country: US (occurrence: US)
  Receive Date: 20150728
  Receipt Date: 20150728
  Transmission Date: 20151125
  Serious: Yes (Other)
  Sender: FDA-Public Use
  Company Number: US-TEVA-580873USA

PATIENT
  Age: 59 Year
  Sex: Female

DRUGS (3)
  1. FLUOROURACIL. [Concomitant]
     Active Substance: FLUOROURACIL
     Indication: COLORECTAL CANCER STAGE III
     Route: 065
  2. OXALIPLATIN INJECTION 50MG/10 MLAND 100MG/20ML [Suspect]
     Active Substance: OXALIPLATIN
     Indication: COLORECTAL CANCER STAGE III
     Dosage: 100 MG/M2 EVERY 2 WEEKS
     Route: 042
  3. FOLINIC ACID [Concomitant]
     Active Substance: LEUCOVORIN
     Indication: COLORECTAL CANCER STAGE III
     Route: 065

REACTIONS (4)
  - Portal hypertension [Unknown]
  - Splenomegaly [Unknown]
  - Thrombocytopenia [Unknown]
  - Anorectal varices haemorrhage [Unknown]
